FAERS Safety Report 16306644 (Version 1)
Quarter: 2019Q2

REPORT INFORMATION
  Report Type: Report from Study
  Country: US (occurrence: US)
  Receive Date: 20190513
  Receipt Date: 20190513
  Transmission Date: 20190711
  Serious: Yes (Hospitalization)
  Sender: FDA-Public Use
  Company Number: US-PFIZER INC-2019199406

PATIENT
  Age: 36 Year
  Sex: Female
  Weight: 92.4 kg

DRUGS (7)
  1. DACARBAZINE. [Suspect]
     Active Substance: DACARBAZINE
     Indication: HODGKIN^S DISEASE
     Dosage: 800 MG, Q2WEEKS;
     Route: 042
     Dates: start: 20190118, end: 20190329
  2. BRENTUXIMAB VEDOTIN RECOMBINANT [Suspect]
     Active Substance: BRENTUXIMAB VEDOTIN
     Indication: HODGKIN^S DISEASE
     Dosage: 86 MG, Q2WEEKS
     Route: 042
     Dates: start: 20190118, end: 20190329
  3. NACL B.BRAUN [Concomitant]
     Dosage: 0.9 %, UNK
  4. ACETAMINOPHEN. [Concomitant]
     Active Substance: ACETAMINOPHEN
     Dosage: 650 MG, UNK
  5. LACTATED RINGERS SOLUTION [Concomitant]
     Active Substance: CALCIUM CHLORIDE\POTASSIUM CHLORIDE\SODIUM CHLORIDE\SODIUM LACTATE
     Dosage: 75 ML, UNK
  6. DOXORUBICIN HCL [Suspect]
     Active Substance: DOXORUBICIN HYDROCHLORIDE
     Indication: HODGKIN^S DISEASE
     Dosage: 50 MG, Q2WEEKS
     Route: 042
     Dates: start: 20190118, end: 20190329
  7. VINBLASTINE [Suspect]
     Active Substance: VINBLASTINE
     Indication: HODGKIN^S DISEASE
     Dosage: 13 MG, Q2WEEKS;
     Route: 042
     Dates: start: 20190118, end: 20190329

REACTIONS (3)
  - Dehydration [Recovering/Resolving]
  - Febrile neutropenia [Recovering/Resolving]
  - Diarrhoea [Recovering/Resolving]

NARRATIVE: CASE EVENT DATE: 20190410
